FAERS Safety Report 25420142 (Version 5)
Quarter: 2025Q3

REPORT INFORMATION
  Report Type: Spontaneous
  Country: US (occurrence: US)
  Receive Date: 20250610
  Receipt Date: 20250903
  Transmission Date: 20251021
  Serious: Yes (Hospitalization, Disabling, Other)
  Sender: SK LIFE SCIENCE
  Company Number: US-SK LIFE SCIENCE, INC-SKPVG-2025-000913

PATIENT

DRUGS (6)
  1. XCOPRI [Suspect]
     Active Substance: CENOBAMATE
     Indication: Seizure
     Route: 048
     Dates: start: 20250502
  2. XCOPRI [Suspect]
     Active Substance: CENOBAMATE
     Indication: Epilepsy
     Dosage: 50MG ONCE DAILY
     Route: 048
  3. XCOPRI [Suspect]
     Active Substance: CENOBAMATE
     Dosage: 100MG, ONCE A DAY
     Route: 048
  4. LAMOTRIGINE [Concomitant]
     Active Substance: LAMOTRIGINE
     Indication: Product used for unknown indication
     Dosage: 200 MILLIGRAM, BID
     Route: 065
  5. CELEXA [Concomitant]
     Active Substance: CITALOPRAM HYDROBROMIDE
     Indication: Product used for unknown indication
     Dosage: 20 MILLIGRAM, QD
     Route: 065
  6. OMEPRAZOLE [Concomitant]
     Active Substance: OMEPRAZOLE
     Indication: Product used for unknown indication
     Route: 065

REACTIONS (17)
  - Cerebrovascular accident [Recovering/Resolving]
  - Loss of consciousness [Recovered/Resolved]
  - Haemorrhage intracranial [Recovering/Resolving]
  - Fall [Recovered/Resolved]
  - Skull fracture [Recovering/Resolving]
  - Ocular discomfort [Recovering/Resolving]
  - Dysphagia [Recovering/Resolving]
  - Gastrointestinal tube insertion [Not Recovered/Not Resolved]
  - Craniocerebral injury [Recovering/Resolving]
  - Thrombosis [Unknown]
  - Seizure [Not Recovered/Not Resolved]
  - Aura [Not Recovered/Not Resolved]
  - Wrong technique in product usage process [Not Recovered/Not Resolved]
  - Living in residential institution [Not Recovered/Not Resolved]
  - Muscle contracture [Not Recovered/Not Resolved]
  - Dysstasia [Not Recovered/Not Resolved]
  - Gait inability [Not Recovered/Not Resolved]

NARRATIVE: CASE EVENT DATE: 20250401
